FAERS Safety Report 4279136-4 (Version None)
Quarter: 2004Q1

REPORT INFORMATION
  Report Type: 
  Country: None (occurrence: None)
  Receive Date: 20040122
  Receipt Date: 20040109
  Transmission Date: 20041129
  Serious: Yes (Death, Other)
  Sender: FDA-Public Use
  Company Number: 2004001768

PATIENT
  Age: 12 Year
  Sex: Male

DRUGS (1)
  1. VORICONAZOLE (VORICONAZOLE) [Suspect]
     Indication: ILL-DEFINED DISORDER

REACTIONS (2)
  - MEDICATION ERROR [None]
  - OVERDOSE [None]
